FAERS Safety Report 7424292-X (Version None)
Quarter: 2011Q2

REPORT INFORMATION
  Report Type: 
  Country: None (occurrence: None)
  Receive Date: 20110419
  Receipt Date: 20110418
  Transmission Date: 20111010
  Serious: Yes (Other)
  Sender: FDA-Public Use
  Company Number: US-PFIZER INC-2011032284

PATIENT
  Sex: Female

DRUGS (1)
  1. CHANTIX [Suspect]
     Indication: SMOKING CESSATION THERAPY
     Dosage: 0.5 MG, STARTER PACK
     Dates: start: 20100128, end: 20100226

REACTIONS (3)
  - NIGHTMARE [None]
  - DEPRESSION [None]
  - DYSKINESIA [None]
